FAERS Safety Report 6544706-7 (Version None)
Quarter: 2010Q1

REPORT INFORMATION
  Report Type: 
  Country: None (occurrence: None)
  Receive Date: 20100121
  Receipt Date: 20100121
  Transmission Date: 20100710
  Serious: Yes (Hospitalization)
  Sender: FDA-Public Use
  Company Number: PHHO2008IT03944

PATIENT
  Sex: Male
  Weight: 75 kg

DRUGS (1)
  1. ALISKIREN ALI+TAB [Suspect]
     Indication: ACUTE MYOCARDIAL INFARCTION
     Dosage: 300 MG, QD
     Route: 048
     Dates: start: 20080214

REACTIONS (4)
  - ANGINA UNSTABLE [None]
  - HYPERTENSION [None]
  - MEDICAL DEVICE IMPLANTATION [None]
  - SYNCOPE [None]
